FAERS Safety Report 8988094 (Version 2)
Quarter: 2013Q1

REPORT INFORMATION
  Report Type: Spontaneous
  Country: JP (occurrence: JP)
  Receive Date: 20121227
  Receipt Date: 20130208
  Transmission Date: 20140127
  Serious: Yes (Hospitalization)
  Sender: FDA-Public Use
  Company Number: JP-ASTRAZENECA-2012SE95768

PATIENT
  Age: 78 Year
  Sex: Male

DRUGS (14)
  1. MEROPEN [Suspect]
     Indication: PNEUMONIA
     Route: 042
     Dates: start: 20121001, end: 20121006
  2. MEROPEN [Suspect]
     Indication: PNEUMONIA
     Route: 042
     Dates: start: 20121018, end: 20121204
  3. ZOSYN [Concomitant]
     Indication: PNEUMONIA
     Dates: start: 20121007, end: 20121012
  4. ZOSYN [Concomitant]
     Indication: PNEUMONIA
     Dates: start: 20121201, end: 20121205
  5. VANCOMYCIN HYDROCHLORIDE [Concomitant]
     Indication: PNEUMONIA
     Dates: start: 20121012, end: 20121030
  6. VANCOMYCIN HYDROCHLORIDE [Concomitant]
     Indication: PSEUDOMEMBRANOUS COLITIS
     Dates: start: 20121012, end: 20121030
  7. VANCOMYCIN HYDROCHLORIDE [Concomitant]
     Indication: PNEUMONIA
     Dates: start: 20121122, end: 20121129
  8. VANCOMYCIN HYDROCHLORIDE [Concomitant]
     Indication: PSEUDOMEMBRANOUS COLITIS
     Dates: start: 20121122, end: 20121129
  9. VANCOMYCIN HYDROCHLORIDE [Concomitant]
     Indication: PNEUMONIA
     Route: 048
     Dates: start: 20121205, end: 20121206
  10. VANCOMYCIN HYDROCHLORIDE [Concomitant]
     Indication: PSEUDOMEMBRANOUS COLITIS
     Route: 048
     Dates: start: 20121205, end: 20121206
  11. AMBISOME [Concomitant]
     Indication: ASPERGILLUS INFECTION
     Dates: start: 20121027, end: 20121206
  12. ROCEPHIN [Concomitant]
     Indication: PNEUMONIA
     Dates: start: 20121012, end: 20121018
  13. PRODIF [Concomitant]
     Indication: CANDIDA INFECTION
     Route: 042
     Dates: start: 20121013, end: 20121026
  14. MODACIN [Concomitant]
     Indication: PNEUMONIA
     Dates: start: 20121205, end: 20121206

REACTIONS (1)
  - Pseudomembranous colitis [Unknown]
